FAERS Safety Report 7203587-9 (Version None)
Quarter: 2010Q4

REPORT INFORMATION
  Report Type: 
  Country: None (occurrence: None)
  Receive Date: 20101228
  Receipt Date: 20101228
  Transmission Date: 20110411
  Serious: Yes (Other)
  Sender: FDA-Public Use
  Company Number: None

PATIENT
  Age: 75 Year
  Sex: Male
  Weight: 79.4 kg

DRUGS (1)
  1. TRANSDERM SCOP [Suspect]

REACTIONS (3)
  - AGITATION [None]
  - DISORIENTATION [None]
  - PSYCHOTIC DISORDER [None]
